FAERS Safety Report 6270916-2 (Version None)
Quarter: 2009Q3

REPORT INFORMATION
  Report Type: 
  Country: None (occurrence: None)
  Receive Date: 20090716
  Receipt Date: 20090716
  Transmission Date: 20100115
  Serious: Yes (Hospitalization, Other)
  Sender: FDA-Public Use
  Company Number: PHHO2009JP01878

PATIENT
  Sex: Male
  Weight: 53 kg

DRUGS (1)
  1. EXELON [Suspect]
     Indication: DEMENTIA ALZHEIMER'S TYPE
     Dosage: 2.5CM2 - 10CM2
     Route: 062
     Dates: start: 20080912, end: 20090312

REACTIONS (12)
  - BENIGN PROSTATIC HYPERPLASIA [None]
  - CEREBRAL ARTERY EMBOLISM [None]
  - CEREBRAL ARTERY STENOSIS [None]
  - CEREBRAL INFARCTION [None]
  - HEMIPLEGIA [None]
  - MOVEMENT DISORDER [None]
  - PARESIS [None]
  - QUADRIPLEGIA [None]
  - SLEEP DISORDER [None]
  - SYNCOPE [None]
  - URINARY INCONTINENCE [None]
  - VASCULAR CALCIFICATION [None]
